FAERS Safety Report 7431536-7 (Version None)
Quarter: 2011Q2

REPORT INFORMATION
  Report Type: 
  Country: None (occurrence: None)
  Receive Date: 20110422
  Receipt Date: 20110413
  Transmission Date: 20111010
  Serious: Yes (Other)
  Sender: FDA-Public Use
  Company Number: US-AMGEN-USASP2011019682

PATIENT
  Age: 64 Year
  Sex: Female

DRUGS (2)
  1. ENBREL [Suspect]
     Indication: RHEUMATOID ARTHRITIS
     Dosage: UNK
     Dates: start: 20100401
  2. METHOTREXATE [Concomitant]
     Dosage: 1 MG, UNK

REACTIONS (6)
  - HYPERTENSION [None]
  - CHILLS [None]
  - RASH MACULAR [None]
  - PYREXIA [None]
  - PRURITUS [None]
  - BLOOD GLUCOSE INCREASED [None]
